FAERS Safety Report 7413457-9 (Version None)
Quarter: 2011Q2

REPORT INFORMATION
  Report Type: 
  Country: None (occurrence: None)
  Receive Date: 20110413
  Receipt Date: 20110330
  Transmission Date: 20111010
  Serious: Yes (Hospitalization)
  Sender: FDA-Public Use
  Company Number: CH-NAPPMUNDI-DEU-2011-0007166

PATIENT
  Age: 58 Year
  Sex: Female

DRUGS (2)
  1. TRAMAL [Suspect]
     Indication: PAIN
     Dosage: 450 MG, DAILY
     Route: 048
     Dates: end: 20110209
  2. PALLADONE [Suspect]
     Indication: PAIN
     Dosage: 4 MG, BID
     Route: 048
     Dates: start: 20110203, end: 20110209

REACTIONS (5)
  - MEDICATION ERROR [None]
  - FALL [None]
  - HEAD INJURY [None]
  - VERTIGO [None]
  - CONFUSIONAL STATE [None]
